FAERS Safety Report 20031309 (Version 1)
Quarter: 2021Q4

REPORT INFORMATION
  Report Type: Spontaneous
  Country: GB (occurrence: None)
  Receive Date: 20211103
  Receipt Date: 20211103
  Transmission Date: 20220303
  Serious: Yes (Hospitalization, Other)
  Sender: FDA-Public Use
  Company Number: 2021A794925

PATIENT
  Sex: Female

DRUGS (9)
  1. OMEPRAZOLE [Suspect]
     Active Substance: OMEPRAZOLE
     Dosage: 20.0MG UNKNOWN
     Route: 065
     Dates: start: 20210902, end: 20210902
  2. AMLODIPINE [Suspect]
     Active Substance: AMLODIPINE BESYLATE
     Dosage: 5.0MG UNKNOWN
     Route: 065
     Dates: start: 20210902, end: 20210902
  3. DALTEPARIN [Suspect]
     Active Substance: DALTEPARIN
     Dosage: 5000 DF (5000 UNITS IN 0.2 ML PRE-FILLED SYRINGE)
     Route: 065
     Dates: start: 20210901, end: 20210901
  4. FUROSEMIDE [Suspect]
     Active Substance: FUROSEMIDE
     Dosage: 20 MG IN 2ML INJECTION (40 MG)
     Route: 065
     Dates: start: 20210901, end: 20210901
  5. FUROSEMIDE [Suspect]
     Active Substance: FUROSEMIDE
     Dosage: 20 MG IN 2ML INJECTION (40 MG)
     Route: 065
     Dates: start: 20210902, end: 20210902
  6. GENTAMICIN [Suspect]
     Active Substance: GENTAMICIN
     Dosage: 80 MG IN 2ML INJECTION (200 MG)
     Route: 065
     Dates: start: 20210902, end: 20210902
  7. ONDANSETRON [Suspect]
     Active Substance: ONDANSETRON
     Dosage: 4 MG IN 2ML INJECTION WITHIN 2 HOURS OF PIPERACILLIN WITH TAZOBACTAM
     Route: 065
  8. PIPERACILLIN AND TAZOBACTAM [Suspect]
     Active Substance: PIPERACILLIN SODIUM\TAZOBACTAM SODIUM
     Dosage: 2.25 G INJECTION (4500 MG)
     Route: 065
     Dates: start: 20210901, end: 20210901
  9. PIPERACILLIN AND TAZOBACTAM [Suspect]
     Active Substance: PIPERACILLIN SODIUM\TAZOBACTAM SODIUM
     Dosage: 2.25 G INJECTION (4500 MG)
     Route: 065
     Dates: start: 20210902, end: 20210902

REACTIONS (6)
  - Illness [Unknown]
  - Abdominal pain upper [Unknown]
  - Body temperature increased [Unknown]
  - Hypotensive crisis [Unknown]
  - Electrocardiogram abnormal [Unknown]
  - Circulatory collapse [Unknown]
